FAERS Safety Report 7583150-0 (Version None)
Quarter: 2011Q2

REPORT INFORMATION
  Report Type: 
  Country: None (occurrence: None)
  Receive Date: 20110630
  Receipt Date: 20110616
  Transmission Date: 20111010
  Serious: Yes (Other)
  Sender: FDA-Public Use
  Company Number: US-RANBAXY-2011RR-45653

PATIENT
  Sex: Female

DRUGS (10)
  1. CIPROFLOXACIN [Suspect]
     Indication: RESPIRATORY TRACT INFECTION
     Dosage: UNK
     Route: 065
     Dates: start: 20030101
  2. LEVAQUIN [Suspect]
     Indication: UPPER RESPIRATORY TRACT INFECTION
     Dosage: 500 MG, QD
     Route: 048
     Dates: start: 20080801
  3. CIPROFLOXACIN [Suspect]
     Dosage: UNK
     Dates: start: 20050101
  4. PREDNISOLONE [Suspect]
     Indication: URTICARIA
     Dosage: UNK
     Route: 065
     Dates: start: 20040101
  5. LEVAQUIN [Suspect]
     Indication: PNEUMONIA
  6. LEVAQUIN [Suspect]
     Indication: BRONCHITIS
  7. LEVAQUIN [Suspect]
     Indication: RESPIRATORY TRACT INFECTION
  8. PREDNISOLONE [Suspect]
     Dosage: UNK
     Dates: start: 20050101
  9. CIPROFLOXACIN [Suspect]
     Indication: PNEUMONIA
     Dosage: UNK
     Dates: start: 20040101
  10. PREDNISOLONE [Suspect]
     Dosage: UNK
     Dates: start: 20060101

REACTIONS (4)
  - TENDONITIS [None]
  - ROTATOR CUFF SYNDROME [None]
  - TENDON RUPTURE [None]
  - MENISCUS LESION [None]
